FAERS Safety Report 13800823 (Version 2)
Quarter: 2019Q1

REPORT INFORMATION
  Report Type: Spontaneous
  Country: PT (occurrence: PT)
  Receive Date: 20170727
  Receipt Date: 20190330
  Transmission Date: 20190417
  Serious: Yes (Hospitalization)
  Sender: FDA-Public Use
  Company Number: PHHY2017PT108311

PATIENT
  Sex: Male

DRUGS (1)
  1. COSENTYX [Suspect]
     Active Substance: SECUKINUMAB
     Indication: ERYTHRODERMIC PSORIASIS
     Dosage: UNK
     Route: 065

REACTIONS (4)
  - Erythrodermic psoriasis [Unknown]
  - Therapy partial responder [Unknown]
  - Tooth abscess [Unknown]
  - Product use in unapproved indication [Unknown]
